FAERS Safety Report 25127401 (Version 1)
Quarter: 2025Q1

REPORT INFORMATION
  Report Type: Spontaneous
  Country: US (occurrence: US)
  Receive Date: 20250327
  Receipt Date: 20250327
  Transmission Date: 20250409
  Serious: Yes (Other)
  Sender: COOPERSURGICAL
  Company Number: US-COOPERSURGICAL, INC.-2025CPS002088

PATIENT
  Age: 39 Year
  Sex: Female
  Weight: 90.703 kg

DRUGS (3)
  1. PARAGARD T 380A [Suspect]
     Active Substance: COPPER
     Indication: Contraception
     Route: 015
     Dates: start: 20140813
  2. TIZANIDINE [Concomitant]
     Active Substance: TIZANIDINE
     Dates: start: 201601
  3. PROZAC [Concomitant]
     Active Substance: FLUOXETINE HYDROCHLORIDE
     Dates: start: 202006

REACTIONS (10)
  - Infertility female [Not Recovered/Not Resolved]
  - Reproductive complication associated with device [Not Recovered/Not Resolved]
  - Device breakage [Recovered/Resolved]
  - Foreign body in reproductive tract [Recovered/Resolved]
  - Device breakage [Recovered/Resolved]
  - Adjustment disorder [Unknown]
  - Depressed mood [Unknown]
  - Dyspareunia [Recovered/Resolved]
  - Pelvic pain [Recovered/Resolved]
  - Abnormal uterine bleeding [Recovered/Resolved]

NARRATIVE: CASE EVENT DATE: 20230101
